FAERS Safety Report 8724845 (Version 1)
Quarter: 2012Q4

REPORT INFORMATION
  Report Type: 
  Country: US (occurrence: US)
  Receive Date: 20120912
  Receipt Date: 20120912
  Transmission Date: 20130627
  Serious: Yes (Other)
  Sender: FDA-Public Use
  Company Number: US-ROCHE-1100499

PATIENT
  Age: 35 Year
  Sex: Male

DRUGS (5)
  1. ACTIVASE [Suspect]
     Indication: PRODUCT USED FOR UNKNOWN INDICATION
     Route: 065
  2. HEPARIN [Concomitant]
     Dosage: 1000 units per hour
     Route: 065
  3. ASPIRIN [Concomitant]
     Route: 065
  4. NITRO DRIP [Concomitant]
     Dosage: 110 mcg per min
     Route: 065
  5. LOPRESSOR [Concomitant]
     Route: 065

REACTIONS (4)
  - Bradycardia [Unknown]
  - Ventricular tachycardia [Unknown]
  - Ventricular extrasystoles [Unknown]
  - Angina pectoris [Unknown]
